FAERS Safety Report 23748042 (Version 3)
Quarter: 2024Q2

REPORT INFORMATION
  Report Type: Report from Study
  Country: CN (occurrence: CN)
  Receive Date: 20240416
  Receipt Date: 20240627
  Transmission Date: 20240716
  Serious: Yes (Hospitalization)
  Sender: FDA-Public Use
  Company Number: CN-Eisai-EC-2024-163530

PATIENT
  Age: 70 Year
  Sex: Male
  Weight: 54 kg

DRUGS (13)
  1. LENVATINIB [Suspect]
     Active Substance: LENVATINIB
     Indication: Hepatic cancer
     Route: 048
     Dates: start: 20200904, end: 20210222
  2. LENVATINIB [Suspect]
     Active Substance: LENVATINIB
     Route: 048
     Dates: start: 20210223, end: 202404
  3. LENVATINIB [Suspect]
     Active Substance: LENVATINIB
     Route: 048
     Dates: start: 20240405, end: 20240605
  4. LENVATINIB [Suspect]
     Active Substance: LENVATINIB
     Route: 048
     Dates: start: 20240607
  5. TORIPALIMAB [Suspect]
     Active Substance: TORIPALIMAB
     Indication: Hepatic cancer
     Dosage: 240MG/PLACEBO
     Route: 042
     Dates: start: 20200904, end: 2024
  6. TORIPALIMAB [Suspect]
     Active Substance: TORIPALIMAB
     Dosage: 240MG/PLACEBO
     Dates: start: 20240407
  7. ENTECAVIR [Concomitant]
     Active Substance: ENTECAVIR
     Indication: Hepatitis B
  8. NIFEDIPINE [Concomitant]
     Active Substance: NIFEDIPINE
     Indication: Hypertension
     Dates: start: 2019
  9. TRIMEBUTINE [Concomitant]
     Active Substance: TRIMEBUTINE
     Indication: Diarrhoea
     Dates: start: 20230927
  10. MONTMORIL [Concomitant]
     Indication: Diarrhoea
     Dates: start: 20231107
  11. SHENGXUEXIAOBAN [Concomitant]
     Indication: Platelet count decreased
     Dates: start: 20240312
  12. SHENGXUEBAO [Concomitant]
     Indication: Platelet count decreased
     Dates: start: 20240312
  13. COMPOUND GLUTAMINE [Concomitant]
     Indication: Diarrhoea
     Dates: start: 20230927

REACTIONS (1)
  - Diarrhoea [Recovering/Resolving]

NARRATIVE: CASE EVENT DATE: 20240402
